FAERS Safety Report 6188148-5 (Version None)
Quarter: 2009Q2

REPORT INFORMATION
  Report Type: 
  Country: None (occurrence: None)
  Receive Date: 20090513
  Receipt Date: 20080724
  Transmission Date: 20091009
  Serious: No
  Sender: FDA-Public Use
  Company Number: A0739566A

PATIENT
  Age: 65 Year
  Sex: Female

DRUGS (11)
  1. DYNACIRC CR [Suspect]
     Indication: HYPERTENSION
     Dosage: 10TAB AT NIGHT
     Route: 048
     Dates: start: 20060101
  2. TRIAMTERENE AND HYDROCHLOROTHIAZIDE [Concomitant]
  3. LOVASTATIN [Concomitant]
  4. EQUATE (ANTACID) [Concomitant]
  5. WATER PILL [Concomitant]
  6. ZYRTEC [Concomitant]
  7. ALBUTEROL [Concomitant]
  8. VITAMIN TAB [Concomitant]
  9. VITAMIN E [Concomitant]
  10. CALCIUM CITRATE [Concomitant]
  11. ROLAIDS [Concomitant]

REACTIONS (9)
  - ABDOMINAL DISTENSION [None]
  - BLOOD PRESSURE INCREASED [None]
  - DISORIENTATION [None]
  - DRUG INEFFECTIVE [None]
  - DYSPEPSIA [None]
  - FATIGUE [None]
  - FLUID RETENTION [None]
  - SEDATION [None]
  - WEIGHT INCREASED [None]
